FAERS Safety Report 8440387-6 (Version None)
Quarter: 2012Q2

REPORT INFORMATION
  Report Type: 
  Country: None (occurrence: None)
  Receive Date: 20120615
  Receipt Date: 20120611
  Transmission Date: 20120825
  Serious: Yes (Other)
  Sender: FDA-Public Use
  Company Number: US-ROCHE-784689

PATIENT
  Sex: Male
  Weight: 73.548 kg

DRUGS (3)
  1. ACCUTANE [Suspect]
     Indication: ACNE
     Route: 065
     Dates: start: 19890401, end: 19891001
  2. ACCUTANE [Suspect]
     Indication: URTICARIA
     Route: 065
     Dates: start: 19930101, end: 19950101
  3. ACCUTANE [Suspect]
     Indication: SEBORRHOEA
     Route: 065

REACTIONS (4)
  - COLITIS ULCERATIVE [None]
  - INFLAMMATORY BOWEL DISEASE [None]
  - ANXIETY [None]
  - DEPRESSION [None]
